FAERS Safety Report 9375512 (Version 1)
Quarter: 2013Q2

REPORT INFORMATION
  Report Type: Spontaneous
  Country: JP (occurrence: JP)
  Receive Date: 20130628
  Receipt Date: 20130628
  Transmission Date: 20140414
  Serious: Yes (Other)
  Sender: FDA-Public Use
  Company Number: JP-BRISTOL-MYERS SQUIBB COMPANY-19042993

PATIENT
  Age: 60 Year
  Sex: Male

DRUGS (3)
  1. AVAPRO [Suspect]
     Indication: HYPERTENSION
     Route: 048
     Dates: start: 20130222, end: 20130228
  2. IRBETAN [Suspect]
     Route: 048
     Dates: end: 20130222
  3. HYPEN [Suspect]
     Route: 048
     Dates: end: 20130322

REACTIONS (2)
  - Hyperkalaemia [Recovering/Resolving]
  - Renal disorder [Unknown]
